FAERS Safety Report 8828477 (Version 1)
Quarter: 2012Q4

REPORT INFORMATION
  Report Type: 
  Country: FR (occurrence: FR)
  Receive Date: 20121005
  Receipt Date: 20121005
  Transmission Date: 20130627
  Serious: Yes (Other)
  Sender: FDA-Public Use
  Company Number: FR-ABBOTT-12P-056-0986802-00

PATIENT
  Age: 50 Year
  Sex: Female

DRUGS (3)
  1. VALPROATE SODIUM [Suspect]
     Indication: PARTIAL SEIZURES
     Route: 065
  2. LACOSAMIDE [Interacting]
     Route: 065
  3. ORLISTAT [Interacting]
     Indication: WEIGHT CONTROL
     Route: 065

REACTIONS (4)
  - Convulsion [Recovering/Resolving]
  - Drug interaction [Unknown]
  - Off label use [Unknown]
  - Malnutrition [Recovering/Resolving]
